FAERS Safety Report 17685075 (Version 1)
Quarter: 2020Q2

REPORT INFORMATION
  Report Type: Spontaneous
  Country: CA (occurrence: CA)
  Receive Date: 20200420
  Receipt Date: 20200420
  Transmission Date: 20200714
  Serious: Yes (Life-Threatening, Hospitalization)
  Sender: FDA-Public Use
  Company Number: CA-009507513-2004CAN004403

PATIENT
  Age: 77 Year
  Sex: Male
  Weight: 66 kg

DRUGS (16)
  1. DILTIAZEM. [Concomitant]
     Active Substance: DILTIAZEM
  2. NITROGLYCERIN. [Concomitant]
     Active Substance: NITROGLYCERIN
  3. KEYTRUDA [Suspect]
     Active Substance: PEMBROLIZUMAB
     Indication: LUNG CARCINOMA CELL TYPE UNSPECIFIED STAGE III
     Dosage: 132 MILLIGRAM 1 EVERY 3 WEEKS
     Route: 042
  4. CRESTOR [Concomitant]
     Active Substance: ROSUVASTATIN CALCIUM
  5. ELOCOM [Concomitant]
     Active Substance: MOMETASONE FUROATE
  6. EZETROL [Concomitant]
     Active Substance: EZETIMIBE
  7. RAMIPRIL. [Concomitant]
     Active Substance: RAMIPRIL
  8. CYANOCOBALAMIN. [Concomitant]
     Active Substance: CYANOCOBALAMIN
  9. ASPIRIN. [Concomitant]
     Active Substance: ASPIRIN
  10. IRON (UNSPECIFIED) [Concomitant]
     Active Substance: IRON
  11. LAX A DAY [Concomitant]
  12. ZOPICLONE [Concomitant]
     Active Substance: ZOPICLONE
  13. CALCIUM (UNSPECIFIED) [Concomitant]
     Active Substance: CALCIUM
  14. METFORMIN [Concomitant]
     Active Substance: METFORMIN HYDROCHLORIDE
  15. VENTOLIN [Concomitant]
     Active Substance: ALBUTEROL SULFATE
  16. VITAMIN D (UNSPECIFIED) [Concomitant]
     Active Substance: VITAMIN D NOS

REACTIONS (6)
  - Acute myocardial infarction [Recovering/Resolving]
  - Atrial flutter [Recovering/Resolving]
  - Gastritis [Recovering/Resolving]
  - Factor VIII deficiency [Recovering/Resolving]
  - Haemoglobin decreased [Recovering/Resolving]
  - Anti factor VIII antibody positive [Recovering/Resolving]
